FAERS Safety Report 20200931 (Version 1)
Quarter: 2021Q4

REPORT INFORMATION
  Report Type: Spontaneous
  Country: US (occurrence: None)
  Receive Date: 20211217
  Receipt Date: 20211217
  Transmission Date: 20220303
  Serious: Yes (Hospitalization)
  Sender: FDA-Public Use
  Company Number: None

PATIENT
  Age: 69 Year
  Sex: Male

DRUGS (4)
  1. PROMACTA [Suspect]
     Active Substance: ELTROMBOPAG OLAMINE
     Indication: Anaemia
     Dosage: FREQUENCY : DAILY;?
     Route: 048
     Dates: start: 201709
  2. TACROLIMUS [Concomitant]
     Active Substance: TACROLIMUS
  3. FINASTERIDE [Concomitant]
     Active Substance: FINASTERIDE
  4. GLIPIZIDE [Concomitant]
     Active Substance: GLIPIZIDE

REACTIONS (3)
  - Haematoma [None]
  - Therapy interrupted [None]
  - Wound [None]

NARRATIVE: CASE EVENT DATE: 20210701
